FAERS Safety Report 22018299 (Version 3)
Quarter: 2023Q2

REPORT INFORMATION
  Report Type: Other
  Country: US (occurrence: US)
  Receive Date: 20230221
  Receipt Date: 20230426
  Transmission Date: 20230722
  Serious: Yes (Hospitalization, Other)
  Sender: FDA-Public Use
  Company Number: US-GBT-020212

PATIENT
  Sex: Female

DRUGS (13)
  1. OXBRYTA [Suspect]
     Active Substance: VOXELOTOR
     Indication: Sickle cell disease
     Route: 048
     Dates: start: 2015
  2. OMEPRAZOLE [Concomitant]
     Active Substance: OMEPRAZOLE
  3. LISINOPRIL [Concomitant]
     Active Substance: LISINOPRIL
  4. ZOFRAN [Concomitant]
     Active Substance: ONDANSETRON HYDROCHLORIDE
  5. COLCHICINE [Concomitant]
     Active Substance: COLCHICINE
  6. PEPCID [Concomitant]
     Active Substance: FAMOTIDINE
  7. HYDROCODONE [Concomitant]
     Active Substance: HYDROCODONE
  8. DICYCLOMINE [Concomitant]
     Active Substance: DICYCLOMINE HYDROCHLORIDE
  9. WARFARIN [Concomitant]
     Active Substance: WARFARIN
  10. D2 vitamin, [Concomitant]
  11. BENTYL [Concomitant]
     Active Substance: DICYCLOMINE HYDROCHLORIDE
  12. VITAMIN B12 [Concomitant]
     Active Substance: CYANOCOBALAMIN
  13. ALBUTEROL [Concomitant]
     Active Substance: ALBUTEROL

REACTIONS (4)
  - Chronic kidney disease [Recovered/Resolved]
  - Sickle cell anaemia with crisis [Recovered/Resolved]
  - Urinary tract infection [Recovered/Resolved]
  - Off label use [Unknown]

NARRATIVE: CASE EVENT DATE: 20150101
